FAERS Safety Report 13704194 (Version 1)
Quarter: 2017Q2

REPORT INFORMATION
  Report Type: Spontaneous
  Country: US (occurrence: US)
  Receive Date: 20170630
  Receipt Date: 20170630
  Transmission Date: 20170830
  Serious: Yes (Other)
  Sender: FDA-Public Use
  Company Number: US-ROCHE-1957115

PATIENT
  Sex: Male

DRUGS (21)
  1. METFORMIN HYDROCHLORIDE. [Concomitant]
     Active Substance: METFORMIN HYDROCHLORIDE
     Route: 065
  2. PRILOSEC [Concomitant]
     Active Substance: OMEPRAZOLE MAGNESIUM
  3. FUROSEMIDE. [Concomitant]
     Active Substance: FUROSEMIDE
  4. JANUVIA [Concomitant]
     Active Substance: SITAGLIPTIN PHOSPHATE
  5. SILVER SULPHADIAZINE [Concomitant]
  6. TAMSULOSIN HCL [Concomitant]
     Active Substance: TAMSULOSIN
  7. ASPIRIN. [Concomitant]
     Active Substance: ASPIRIN
  8. FLOMAX [Concomitant]
     Active Substance: TAMSULOSIN HYDROCHLORIDE
  9. LASIX [Concomitant]
     Active Substance: FUROSEMIDE
  10. RANITIDINE HCL [Concomitant]
     Active Substance: RANITIDINE HYDROCHLORIDE
  11. TYLENOL [Concomitant]
     Active Substance: ACETAMINOPHEN
  12. BETAMETHASONE DIPROPIONATE. [Concomitant]
     Active Substance: BETAMETHASONE DIPROPIONATE
  13. FLUOROURACIL. [Concomitant]
     Active Substance: FLUOROURACIL
  14. METOPROLOL TARTRATE. [Concomitant]
     Active Substance: METOPROLOL TARTRATE
  15. ESCITALOPRAM OXALATE. [Concomitant]
     Active Substance: ESCITALOPRAM OXALATE
  16. INVOKANA [Concomitant]
     Active Substance: CANAGLIFLOZIN
  17. SIMVASTATIN. [Concomitant]
     Active Substance: SIMVASTATIN
  18. ERIVEDGE [Suspect]
     Active Substance: VISMODEGIB
     Indication: BASAL CELL CARCINOMA
     Route: 048
     Dates: start: 20161203
  19. ALLOPURINOL. [Concomitant]
     Active Substance: ALLOPURINOL
     Route: 065
  20. ISOSORBIDE DINITRATE. [Concomitant]
     Active Substance: ISOSORBIDE DINITRATE
  21. NITROGLYCERIN. [Concomitant]
     Active Substance: NITROGLYCERIN
     Route: 065

REACTIONS (2)
  - Alopecia [Unknown]
  - Ulcer haemorrhage [Unknown]
